FAERS Safety Report 16649760 (Version 4)
Quarter: 2020Q1

REPORT INFORMATION
  Report Type: Report from Study
  Country: None (occurrence: US)
  Receive Date: 20190730
  Receipt Date: 20200114
  Transmission Date: 20200409
  Serious: Yes (Other)
  Sender: FDA-Public Use
  Company Number: US-ABBVIE-19K-163-2866807-00

PATIENT
  Age: 32 Year
  Sex: Male

DRUGS (2)
  1. HUMIRA [Suspect]
     Active Substance: ADALIMUMAB
     Indication: PSORIATIC ARTHROPATHY
     Route: 058
     Dates: start: 20190523, end: 201911
  2. CITALOPRAM [Concomitant]
     Active Substance: CITALOPRAM HYDROBROMIDE
     Indication: PRODUCT USED FOR UNKNOWN INDICATION

REACTIONS (25)
  - Peripheral swelling [Unknown]
  - Ear infection [Unknown]
  - Paraesthesia [Unknown]
  - Swelling [Unknown]
  - Ear pain [Unknown]
  - Therapeutic response shortened [Unknown]
  - Injury [Unknown]
  - Chest pain [Unknown]
  - Blindness unilateral [Unknown]
  - Impaired self-care [Not Recovered/Not Resolved]
  - Hypoaesthesia [Unknown]
  - Pain in extremity [Not Recovered/Not Resolved]
  - Muscle spasms [Unknown]
  - Pyrexia [Unknown]
  - Concussion [Not Recovered/Not Resolved]
  - Deafness unilateral [Unknown]
  - Loss of personal independence in daily activities [Not Recovered/Not Resolved]
  - Gait disturbance [Unknown]
  - Depression [Unknown]
  - Back pain [Unknown]
  - Speech disorder [Unknown]
  - Fatigue [Unknown]
  - Musculoskeletal stiffness [Not Recovered/Not Resolved]
  - Headache [Unknown]
  - Dyspnoea [Unknown]

NARRATIVE: CASE EVENT DATE: 2019
